FAERS Safety Report 17367116 (Version 1)
Quarter: 2020Q1

REPORT INFORMATION
  Report Type: Spontaneous
  Country: BR (occurrence: BR)
  Receive Date: 20200204
  Receipt Date: 20200204
  Transmission Date: 20200409
  Serious: Yes (Other)
  Sender: FDA-Public Use
  Company Number: BR-PFIZER INC-2020045859

PATIENT

DRUGS (1)
  1. XELJANZ [Suspect]
     Active Substance: TOFACITINIB CITRATE
     Dosage: UNK
     Dates: start: 2019, end: 201911

REACTIONS (5)
  - Syncope [Unknown]
  - Cortisol decreased [Unknown]
  - Adrenal disorder [Unknown]
  - Hypothalamo-pituitary disorder [Unknown]
  - Rheumatoid arthritis [Unknown]
